FAERS Safety Report 10355052 (Version 1)
Quarter: 2014Q3

REPORT INFORMATION
  Report Type: Spontaneous
  Country: FR (occurrence: FR)
  Receive Date: 20140731
  Receipt Date: 20140731
  Transmission Date: 20150326
  Serious: Yes (Hospitalization)
  Sender: FDA-Public Use
  Company Number: FR-ASTRAZENECA-2014SE54383

PATIENT
  Age: 9237 Day
  Sex: Female

DRUGS (3)
  1. INEXIUM [Suspect]
     Active Substance: ESOMEPRAZOLE
     Route: 065
     Dates: end: 20140620
  2. BRISTOPEN [Suspect]
     Active Substance: OXACILLIN SODIUM
     Indication: BACTERIAL INFECTION
     Route: 042
     Dates: start: 20140527, end: 20140620
  3. CLINDAMYCIN [Suspect]
     Active Substance: CLINDAMYCIN\CLINDAMYCIN PHOSPHATE
     Indication: BACTERIAL INFECTION
     Route: 042
     Dates: start: 20140527, end: 20140620

REACTIONS (2)
  - Agranulocytosis [Recovered/Resolved]
  - Post procedural infection [Unknown]

NARRATIVE: CASE EVENT DATE: 20140620
